FAERS Safety Report 7554110-0 (Version None)
Quarter: 2011Q2

REPORT INFORMATION
  Report Type: 
  Country: None (occurrence: None)
  Receive Date: 20110617
  Receipt Date: 20110610
  Transmission Date: 20111010
  Serious: Yes (Other)
  Sender: FDA-Public Use
  Company Number: CA-SANOFI-AVENTIS-2011SA036856

PATIENT
  Age: 57 Year
  Sex: Female

DRUGS (2)
  1. FERRLECIT [Suspect]
     Route: 065
     Dates: start: 20110606
  2. FERRLECIT [Suspect]
     Route: 042
     Dates: start: 20110211

REACTIONS (5)
  - PRODUCT QUALITY ISSUE [None]
  - VOMITING [None]
  - MALAISE [None]
  - BLOOD PRESSURE DECREASED [None]
  - FAECAL INCONTINENCE [None]
